FAERS Safety Report 5167898-3 (Version None)
Quarter: 2006Q4

REPORT INFORMATION
  Report Type: 
  Country: None (occurrence: None)
  Receive Date: 20061208
  Receipt Date: 20061129
  Transmission Date: 20070319
  Serious: Yes (Other)
  Sender: FDA-Public Use
  Company Number: US-AVENTIS-200619697US

PATIENT
  Sex: Female

DRUGS (7)
  1. LANTUS [Suspect]
     Indication: DIABETES MELLITUS INSULIN-DEPENDENT
  2. LANTUS [Suspect]
  3. HUMALOG [Concomitant]
     Dosage: DOSE: UNK
  4. PROTONIX [Concomitant]
     Dosage: DOSE: UNK
  5. ASPIRIN [Concomitant]
  6. ENALAPRIL MALEATE [Concomitant]
     Dosage: DOSE: UNK
  7. METOPROLOL SUCCINATE [Concomitant]
     Dosage: DOSE: UNK

REACTIONS (7)
  - BLOOD GLUCOSE INCREASED [None]
  - BLOOD PRESSURE INCREASED [None]
  - DRUG INEFFECTIVE [None]
  - HEADACHE [None]
  - HEART RATE INCREASED [None]
  - HYPERHIDROSIS [None]
  - MALAISE [None]
